FAERS Safety Report 6540374-9 (Version None)
Quarter: 2010Q1

REPORT INFORMATION
  Report Type: 
  Country: None (occurrence: None)
  Receive Date: 20100115
  Receipt Date: 20100113
  Transmission Date: 20100710
  Serious: Yes (Hospitalization)
  Sender: FDA-Public Use
  Company Number: DE-MERCK-0912DEU00029

PATIENT
  Age: 68 Year
  Sex: Female
  Weight: 63 kg

DRUGS (7)
  1. PRIMAXIN [Suspect]
     Indication: MASS
     Route: 041
     Dates: start: 20091204, end: 20091207
  2. PRIMAXIN [Suspect]
     Indication: LUNG INFILTRATION
     Route: 041
     Dates: start: 20091204, end: 20091207
  3. LEVOTHYROXINE SODIUM [Concomitant]
     Route: 048
  4. ASPIRIN [Concomitant]
     Route: 048
  5. DIPYRONE [Concomitant]
     Route: 065
  6. HYDROCHLOROTHIAZIDE [Concomitant]
     Route: 048
  7. PREDNISONE [Concomitant]
     Route: 048

REACTIONS (1)
  - HYPOACUSIS [None]
